FAERS Safety Report 6219932-7 (Version None)
Quarter: 2009Q2

REPORT INFORMATION
  Report Type: 
  Country: None (occurrence: None)
  Receive Date: 20090609
  Receipt Date: 20090204
  Transmission Date: 20091009
  Serious: No
  Sender: FDA-Public Use
  Company Number: US-BAYER-200913062NA

PATIENT
  Sex: Female
  Weight: 91 kg

DRUGS (1)
  1. ULTRAVIST (PHARMACY BULK) [Suspect]
     Indication: COMPUTERISED TOMOGRAM ABDOMEN
     Dosage: TOTAL DAILY DOSE: 85 ML  UNIT DOSE: 500 ML
     Route: 042
     Dates: start: 20090204, end: 20090204

REACTIONS (3)
  - PRURITUS [None]
  - RASH [None]
  - URTICARIA [None]
